FAERS Safety Report 22637314 (Version 6)
Quarter: 2023Q4

REPORT INFORMATION
  Report Type: Report from Study
  Country: IT (occurrence: IT)
  Receive Date: 20230626
  Receipt Date: 20231121
  Transmission Date: 20240110
  Serious: Yes (Other)
  Sender: FDA-Public Use
  Company Number: IT-002147023-NVSC2023IT144091

PATIENT
  Age: 49 Year
  Sex: Female

DRUGS (3)
  1. COSENTYX [Suspect]
     Active Substance: SECUKINUMAB
     Indication: Psoriasis
     Dosage: 150 MG, QMO (EVERY 28 DAYS)
     Route: 058
     Dates: start: 20191106
  2. COSENTYX [Suspect]
     Active Substance: SECUKINUMAB
     Dosage: 300 MG, Q2W (EVERY 14 DAYS)
     Route: 058
     Dates: start: 20211109
  3. COSENTYX [Suspect]
     Active Substance: SECUKINUMAB
     Dosage: 300 MG, QMO (EVERY 28 DAYS)
     Route: 065
     Dates: start: 20211109

REACTIONS (11)
  - Haematochezia [Unknown]
  - Micturition urgency [Unknown]
  - Dysuria [Unknown]
  - Psoriasis [Unknown]
  - COVID-19 [Unknown]
  - Heavy menstrual bleeding [Unknown]
  - Skin ulcer [Not Recovered/Not Resolved]
  - Pain [Not Recovered/Not Resolved]
  - Pruritus [Not Recovered/Not Resolved]
  - Pain in extremity [Unknown]
  - Injection site pain [Unknown]
